FAERS Safety Report 6062918-6 (Version None)
Quarter: 2009Q1

REPORT INFORMATION
  Report Type: 
  Country: None (occurrence: None)
  Receive Date: 20090203
  Receipt Date: 20090128
  Transmission Date: 20090719
  Serious: Yes (Hospitalization, Other)
  Sender: FDA-Public Use
  Company Number: ES-JNJFOC-20081202817

PATIENT
  Sex: Male

DRUGS (4)
  1. REMICADE [Suspect]
     Dosage: 6TH INFUSION
     Route: 042
  2. REMICADE [Suspect]
     Dosage: 4TH INFUSION
     Route: 042
  3. REMICADE [Suspect]
     Route: 042
  4. REMICADE [Suspect]
     Indication: PSORIASIS
     Route: 042

REACTIONS (8)
  - COUGH [None]
  - DYSPNOEA [None]
  - LUNG DISORDER [None]
  - PLEURISY [None]
  - PULMONARY GRANULOMA [None]
  - PYREXIA [None]
  - TRANSAMINASES INCREASED [None]
  - TUBERCULOSIS [None]
